FAERS Safety Report 21871944 (Version 1)
Quarter: 2023Q1

REPORT INFORMATION
  Report Type: Spontaneous
  Country: US (occurrence: US)
  Receive Date: 20230117
  Receipt Date: 20230117
  Transmission Date: 20230418
  Serious: Yes (Life-Threatening)
  Sender: FDA-Public Use
  Company Number: US-MYLANLABS-2022M1130106

PATIENT
  Sex: Female
  Weight: 79.38 kg

DRUGS (4)
  1. CLONIDINE TRANSDERMAL SYSTEM [Suspect]
     Active Substance: CLONIDINE
     Indication: Blood pressure measurement
     Dosage: 0.1 MILLIGRAM, QD
     Route: 062
     Dates: start: 202208
  2. CLONIDINE TRANSDERMAL SYSTEM [Suspect]
     Active Substance: CLONIDINE
     Indication: Blood pressure measurement
     Dosage: 0.2 MILLIGRAM
     Route: 062
  3. CLONIDINE TRANSDERMAL SYSTEM [Suspect]
     Active Substance: CLONIDINE
  4. ARMOUR THYROID [Concomitant]
     Active Substance: THYROID, PORCINE
     Indication: Thyroid disorder
     Dosage: 60 MILLIGRAM, QD
     Route: 065

REACTIONS (3)
  - Coma [Unknown]
  - Therapeutic product effect incomplete [Unknown]
  - Product storage error [Unknown]
